FAERS Safety Report 15258816 (Version 1)
Quarter: 2018Q3

REPORT INFORMATION
  Report Type: Spontaneous
  Country: US (occurrence: US)
  Receive Date: 20180809
  Receipt Date: 20180809
  Transmission Date: 20181010
  Serious: No
  Sender: FDA-Public Use
  Company Number: US-DRREDDYS-USA/USA/18/0100639

PATIENT
  Sex: Female
  Weight: 66.36 kg

DRUGS (2)
  1. OMEPRAZOLE AND SODIUM BICARBONATE CAPSULES [Suspect]
     Active Substance: OMEPRAZOLE\SODIUM BICARBONATE
     Indication: IMPAIRED GASTRIC EMPTYING
     Route: 048
  2. CLONAZEPAM. [Concomitant]
     Active Substance: CLONAZEPAM
     Indication: PRODUCT USED FOR UNKNOWN INDICATION
     Route: 065

REACTIONS (4)
  - Throat irritation [Unknown]
  - Product size issue [Unknown]
  - Vomiting [Unknown]
  - Dysphagia [Unknown]
